FAERS Safety Report 6814234-X (Version None)
Quarter: 2010Q2

REPORT INFORMATION
  Report Type: 
  Country: None (occurrence: None)
  Receive Date: 20100629
  Receipt Date: 20100614
  Transmission Date: 20101027
  Serious: Yes (Other)
  Sender: FDA-Public Use
  Company Number: IPC201006-000163

PATIENT
  Sex: Female

DRUGS (1)
  1. ATENOLOL [Suspect]
     Indication: HYPERTENSION
     Dosage: 100 MG, TWICE DAILY, ORAL
     Route: 048
     Dates: start: 20100604

REACTIONS (4)
  - ADVERSE REACTION [None]
  - DRUG INEFFECTIVE [None]
  - MYALGIA [None]
  - PRODUCT QUALITY ISSUE [None]
